FAERS Safety Report 5818672-3 (Version None)
Quarter: 2008Q3

REPORT INFORMATION
  Report Type: 
  Country: None (occurrence: None)
  Receive Date: 20080717
  Receipt Date: 20080717
  Transmission Date: 20090109
  Serious: Yes (Other)
  Sender: FDA-Public Use
  Company Number: None

PATIENT
  Age: 49 Year
  Sex: Female
  Weight: 43.0917 kg

DRUGS (1)
  1. CIPROFLOXICIN 750 MG BAYER [Suspect]
     Indication: MYCOBACTERIAL INFECTION
     Dosage: 750 MG BID PO
     Route: 048
     Dates: start: 20060410, end: 20060723

REACTIONS (4)
  - MUSCLE ATROPHY [None]
  - TENDON GRAFT [None]
  - TENDON RUPTURE [None]
  - TENDONITIS [None]
